FAERS Safety Report 16950051 (Version 1)
Quarter: 2019Q4

REPORT INFORMATION
  Report Type: Spontaneous
  Country: FR (occurrence: FR)
  Receive Date: 20191023
  Receipt Date: 20191023
  Transmission Date: 20200122
  Serious: Yes (Other)
  Sender: FDA-Public Use
  Company Number: FR-TEVA-2019-FR-1126791

PATIENT
  Age: 49 Year
  Sex: Female

DRUGS (3)
  1. ESTREVA 0,1% GEL [Suspect]
     Active Substance: ESTRADIOL
     Indication: OOPHORECTOMY
     Route: 003
     Dates: start: 20111212, end: 20180820
  2. OESTRODOSE [Suspect]
     Active Substance: ESTRADIOL
     Indication: OOPHORECTOMY
     Route: 003
     Dates: start: 20111212, end: 20180820
  3. PROGESTAN 100 MG [Suspect]
     Active Substance: PROGESTERONE
     Indication: OOPHORECTOMY
     Dosage: 100 MILLIGRAM DAILY;
     Route: 067
     Dates: start: 20111212, end: 20180820

REACTIONS (1)
  - Meningioma [Recovering/Resolving]

NARRATIVE: CASE EVENT DATE: 201807
